FAERS Safety Report 5134662-0 (Version None)
Quarter: 2006Q4

REPORT INFORMATION
  Report Type: 
  Country: None (occurrence: None)
  Receive Date: 20061025
  Receipt Date: 20061023
  Transmission Date: 20070319
  Serious: Yes (Other)
  Sender: FDA-Public Use
  Company Number: CN-GLAXOSMITHKLINE-B0443505A

PATIENT
  Age: 53 Year
  Sex: Male

DRUGS (1)
  1. HEPTODIN [Suspect]
     Indication: HEPATIC CIRRHOSIS
     Dosage: 100MG PER DAY
     Route: 048
     Dates: start: 20060301

REACTIONS (2)
  - PRURITUS [None]
  - RASH MACULO-PAPULAR [None]
